FAERS Safety Report 9282148 (Version 1)
Quarter: 2013Q2

REPORT INFORMATION
  Report Type: Spontaneous
  Country: AR (occurrence: AR)
  Receive Date: 20130510
  Receipt Date: 20130510
  Transmission Date: 20140414
  Serious: Yes (Other)
  Sender: FDA-Public Use
  Company Number: AR-AMGEN-ARGSP2013032560

PATIENT
  Age: 49 Year
  Sex: Male

DRUGS (2)
  1. ENBREL [Suspect]
     Indication: PRODUCT USED FOR UNKNOWN INDICATION
     Dosage: 50 MG, WEEKLY
  2. METHOTREXATE [Concomitant]
     Dosage: UNK UNK, UNK

REACTIONS (5)
  - Synovitis [Unknown]
  - Pain in extremity [Unknown]
  - Haematoma [Unknown]
  - Synovial cyst [Unknown]
  - Abscess limb [Unknown]
